FAERS Safety Report 5639205-0 (Version None)
Quarter: 2008Q1

REPORT INFORMATION
  Report Type: 
  Country: None (occurrence: None)
  Receive Date: 20080226
  Receipt Date: 20080222
  Transmission Date: 20080703
  Serious: Yes (Life-Threatening, Hospitalization)
  Sender: FDA-Public Use
  Company Number: PHBS2007JP19595

PATIENT
  Age: 81 Year
  Sex: Male

DRUGS (2)
  1. VOLTAREN [Suspect]
     Indication: SPINAL OSTEOARTHRITIS
     Dosage: UNK, UNK
     Route: 048
     Dates: end: 20070704
  2. BUFFERIN [Suspect]
     Indication: SPINAL OSTEOARTHRITIS

REACTIONS (5)
  - ANAEMIA [None]
  - DUODENAL STENOSIS [None]
  - DUODENAL ULCER HAEMORRHAGE [None]
  - HAEMOGLOBIN DECREASED [None]
  - SMALL INTESTINAL HAEMORRHAGE [None]
